FAERS Safety Report 16061893 (Version 1)
Quarter: 2019Q1

REPORT INFORMATION
  Report Type: Spontaneous
  Country: CN (occurrence: CN)
  Receive Date: 20190312
  Receipt Date: 20190312
  Transmission Date: 20190418
  Serious: Yes (Life-Threatening)
  Sender: FDA-Public Use
  Company Number: CN-ROCHE-2272814

PATIENT
  Age: 39 Year
  Sex: Male

DRUGS (12)
  1. ENDOSTAR [Concomitant]
     Active Substance: ENDOSTATIN
     Route: 065
     Dates: start: 20170428
  2. KEYTRUDA [Concomitant]
     Active Substance: PEMBROLIZUMAB
     Route: 065
     Dates: start: 20170731
  3. DOCETAXEL. [Concomitant]
     Active Substance: DOCETAXEL
     Route: 065
     Dates: start: 20170428
  4. KEYTRUDA [Concomitant]
     Active Substance: PEMBROLIZUMAB
     Route: 065
     Dates: start: 20170525, end: 20170710
  5. ZELBORAF [Suspect]
     Active Substance: VEMURAFENIB
     Indication: METASTASES TO CENTRAL NERVOUS SYSTEM
  6. KEYTRUDA [Concomitant]
     Active Substance: PEMBROLIZUMAB
     Route: 065
     Dates: start: 20171101
  7. TRAMETINIB [Concomitant]
     Active Substance: TRAMETINIB
     Route: 065
     Dates: start: 20170826, end: 2017
  8. DABRAFENIB [Concomitant]
     Active Substance: DABRAFENIB
     Route: 065
     Dates: start: 20171101
  9. ZELBORAF [Suspect]
     Active Substance: VEMURAFENIB
     Indication: MELANOMA RECURRENT
     Route: 065
     Dates: start: 20170320
  10. DABRAFENIB [Concomitant]
     Active Substance: DABRAFENIB
     Route: 065
     Dates: start: 20170826, end: 2017
  11. TRAMETINIB [Concomitant]
     Active Substance: TRAMETINIB
     Route: 065
     Dates: start: 20171101
  12. TEMOZOLOMIDE. [Concomitant]
     Active Substance: TEMOZOLOMIDE
     Route: 065
     Dates: start: 20170222

REACTIONS (6)
  - Vascular rupture [Unknown]
  - Decreased appetite [Unknown]
  - Skin reaction [Unknown]
  - Axillary mass [Unknown]
  - Fatigue [Unknown]
  - Blood lactate dehydrogenase increased [Unknown]
